FAERS Safety Report 19416860 (Version 1)
Quarter: 2021Q2

REPORT INFORMATION
  Report Type: Spontaneous
  Country: US (occurrence: US)
  Receive Date: 20210614
  Receipt Date: 20210614
  Transmission Date: 20210717
  Serious: Yes (Hospitalization)
  Sender: FDA-Public Use
  Company Number: None

PATIENT
  Sex: Female

DRUGS (1)
  1. OCTREOTIDE 100MCG/ML SYR [Suspect]
     Active Substance: OCTREOTIDE
     Indication: PANCREATITIS ACUTE
     Dosage: ?          OTHER STRENGTH:100 UG/ML;?
     Route: 048
     Dates: start: 20190416

REACTIONS (2)
  - Therapy interrupted [None]
  - Hospitalisation [None]
